FAERS Safety Report 21215312 (Version 1)
Quarter: 2022Q3

REPORT INFORMATION
  Report Type: Report from Study
  Country: CN (occurrence: CN)
  Receive Date: 20220816
  Receipt Date: 20220816
  Transmission Date: 20221027
  Serious: Yes (Death)
  Sender: FDA-Public Use
  Company Number: CN-NOVARTISPH-NVSC2022CN184154

PATIENT
  Age: 72 Year
  Sex: Female

DRUGS (1)
  1. ACLASTA [Suspect]
     Active Substance: ZOLEDRONIC ACID
     Indication: Product used for unknown indication
     Dosage: UNK
     Route: 065
     Dates: start: 202204

REACTIONS (3)
  - Diarrhoea [Fatal]
  - Hypocalcaemia [Fatal]
  - Electrolyte imbalance [Fatal]

NARRATIVE: CASE EVENT DATE: 20220401
